FAERS Safety Report 4931652-5 (Version None)
Quarter: 2006Q1

REPORT INFORMATION
  Report Type: 
  Country: None (occurrence: None)
  Receive Date: 20060303
  Receipt Date: 20051130
  Transmission Date: 20060701
  Serious: No
  Sender: FDA-Public Use
  Company Number: US-BRISTOL-MYERS SQUIBB COMPANY-13199716

PATIENT
  Age: 65 Year
  Sex: Male
  Weight: 89 kg

DRUGS (7)
  1. ERBITUX [Suspect]
     Indication: COLON CANCER METASTATIC
     Dosage: LOADING DOSE OF 840 ML INITIATED ON 14-NOV-2005.  INTERRUPTED 30-NOV-2005.
     Route: 042
     Dates: start: 20051101, end: 20051101
  2. BENADRYL [Concomitant]
     Indication: PREMEDICATION
     Route: 042
     Dates: start: 20051101, end: 20051101
  3. COUMADIN [Concomitant]
  4. LOMOTIL [Concomitant]
  5. LORTAB [Concomitant]
  6. PEPCID [Concomitant]
  7. PHENERGAN [Concomitant]

REACTIONS (2)
  - DIARRHOEA [None]
  - RASH PAPULAR [None]
